FAERS Safety Report 23692319 (Version 7)
Quarter: 2025Q1

REPORT INFORMATION
  Report Type: Spontaneous
  Country: JP (occurrence: JP)
  Receive Date: 20240401
  Receipt Date: 20250130
  Transmission Date: 20250408
  Serious: Yes (Death, Life-Threatening, Other)
  Sender: GENMAB
  Company Number: JP-GENMAB-2024-00524

PATIENT
  Age: 84 Year
  Sex: Male

DRUGS (13)
  1. EPKINLY [Suspect]
     Active Substance: EPCORITAMAB-BYSP
     Indication: Diffuse large B-cell lymphoma
     Route: 058
     Dates: start: 20240110, end: 20240110
  2. EPKINLY [Suspect]
     Active Substance: EPCORITAMAB-BYSP
     Route: 058
     Dates: start: 20240117, end: 20240117
  3. EPKINLY [Suspect]
     Active Substance: EPCORITAMAB-BYSP
     Route: 058
     Dates: start: 20240124, end: 2024
  4. TOCILIZUMAB [Suspect]
     Active Substance: TOCILIZUMAB
     Indication: Product used for unknown indication
     Route: 065
  5. DEXAMETHASONE [Suspect]
     Active Substance: DEXAMETHASONE
     Indication: Product used for unknown indication
     Route: 065
  6. AMITIZA [Concomitant]
     Active Substance: LUBIPROSTONE
  7. NAFTOPIDIL [Concomitant]
     Active Substance: NAFTOPIDIL
  8. MIRABEGRON [Concomitant]
     Active Substance: MIRABEGRON
  9. MIDODRINE HYDROCHLORIDE [Concomitant]
     Active Substance: MIDODRINE HYDROCHLORIDE
  10. LANSOPRAZOLE [Concomitant]
     Active Substance: LANSOPRAZOLE
  11. ZOVIRAX [Concomitant]
     Active Substance: ACYCLOVIR
  12. DAYVIGO [Concomitant]
     Active Substance: LEMBOREXANT
  13. SULFAMETHOXAZOLE\TRIMETHOPRIM [Concomitant]
     Active Substance: SULFAMETHOXAZOLE\TRIMETHOPRIM

REACTIONS (9)
  - Infectious pleural effusion [Fatal]
  - Hypercapnia [Fatal]
  - COVID-19 pneumonia [Not Recovered/Not Resolved]
  - Eastern Cooperative Oncology Group performance status worsened [Unknown]
  - Diffuse large B-cell lymphoma [Unknown]
  - Respiratory failure [Unknown]
  - Enterobacter bacteraemia [Unknown]
  - Cytokine release syndrome [Recovered/Resolved]
  - Cytokine release syndrome [Unknown]

NARRATIVE: CASE EVENT DATE: 20240101
